FAERS Safety Report 16113732 (Version 1)
Quarter: 2019Q1

REPORT INFORMATION
  Report Type: Spontaneous
  Country: FR (occurrence: FR)
  Receive Date: 20190325
  Receipt Date: 20190325
  Transmission Date: 20190418
  Serious: Yes (Other)
  Sender: FDA-Public Use
  Company Number: FR-PFIZER INC-2019123921

PATIENT
  Age: 72 Year
  Sex: Female
  Weight: 158 kg

DRUGS (1)
  1. BOSULIF [Suspect]
     Active Substance: BOSUTINIB MONOHYDRATE
     Indication: CHRONIC MYELOID LEUKAEMIA
     Dosage: 200 MG, 1X/DAY
     Route: 048
     Dates: start: 20180516

REACTIONS (2)
  - Underdose [Unknown]
  - Peripheral artery stenosis [Recovering/Resolving]

NARRATIVE: CASE EVENT DATE: 20180516
